FAERS Safety Report 12742527 (Version 1)
Quarter: 2016Q3

REPORT INFORMATION
  Report Type: Spontaneous
  Country: DK (occurrence: GB)
  Receive Date: 20160914
  Receipt Date: 20160914
  Transmission Date: 20161109
  Serious: Yes (Hospitalization)
  Sender: FDA-Public Use
  Company Number: DK-BEH-2016073378

PATIENT
  Age: 51 Year
  Sex: Male

DRUGS (3)
  1. CLARITHROMYCIN. [Concomitant]
     Active Substance: CLARITHROMYCIN
     Dosage: UNK
     Route: 065
     Dates: start: 20151028
  2. DESMOPRESSIN (INN) [Suspect]
     Active Substance: DESMOPRESSIN
     Indication: ENURESIS
     Dosage: AT NIGHT. TAKES LONG TERM
     Route: 048
  3. DIPROBASE                          /01132701/ [Concomitant]
     Dosage: UNK
     Route: 065
     Dates: start: 20150727

REACTIONS (3)
  - Hyponatraemia [Recovered/Resolved]
  - Overdose [Unknown]
  - Confusional state [Recovered/Resolved]

NARRATIVE: CASE EVENT DATE: 20151001
